FAERS Safety Report 8464960-4 (Version None)
Quarter: 2012Q2

REPORT INFORMATION
  Report Type: 
  Country: None (occurrence: None)
  Receive Date: 20120323
  Receipt Date: 20110922
  Transmission Date: 20120825
  Serious: Yes (Other)
  Sender: FDA-Public Use
  Company Number: 163-21880-11093082

PATIENT
  Age: 73 Year
  Sex: Female

DRUGS (3)
  1. OOMEPRAZOLE MAGNESIUM (OMEPRAZOLE MAGNESIUM) [Concomitant]
  2. DIOVAN HCT (CO-DIOVAN) [Concomitant]
  3. REVLIMID [Suspect]
     Indication: MULTIPLE MYELOMA
     Dosage: 25 MG, PO
     Route: 048
     Dates: start: 20100826

REACTIONS (1)
  - NEUTROPENIA [None]
